FAERS Safety Report 9702182 (Version 1)
Quarter: 2013Q4

REPORT INFORMATION
  Report Type: Spontaneous
  Country: US (occurrence: US)
  Receive Date: 20131121
  Receipt Date: 20131121
  Transmission Date: 20140711
  Serious: Yes (Other)
  Sender: FDA-Public Use
  Company Number: US-BAYER-2013-139634

PATIENT
  Age: 35 Year
  Sex: Female

DRUGS (1)
  1. MIRENA [Suspect]
     Indication: VAGINAL HAEMORRHAGE
     Dosage: 20 ?G/D, CONT
     Route: 015
     Dates: start: 201012

REACTIONS (4)
  - Haemodialysis complication [Unknown]
  - Genital haemorrhage [Unknown]
  - Vaginal discharge [Unknown]
  - Abdominal pain lower [Unknown]
